FAERS Safety Report 4586605-6 (Version None)
Quarter: 2005Q1

REPORT INFORMATION
  Report Type: 
  Country: None (occurrence: None)
  Receive Date: 20050218
  Receipt Date: 20040624
  Transmission Date: 20050727
  Serious: No
  Sender: FDA-Public Use
  Company Number: US-BRISTOL-MYERS SQUIBB COMPANY-12625158

PATIENT
  Age: 44 Year

DRUGS (2)
  1. TAXOL [Suspect]
     Dates: start: 20040531, end: 20040531
  2. PARAPLATIN [Concomitant]
     Dates: start: 20040531, end: 20040531

REACTIONS (1)
  - ADVERSE DRUG REACTION [None]
